FAERS Safety Report 19950544 (Version 1)
Quarter: 2021Q4

REPORT INFORMATION
  Report Type: Spontaneous
  Country: US (occurrence: US)
  Receive Date: 20211013
  Receipt Date: 20211013
  Transmission Date: 20220303
  Serious: No
  Sender: FDA-Public Use
  Company Number: US-NOVARTISTESTPH-NVSC2021US234143

PATIENT
  Age: 32 Year
  Sex: Male

DRUGS (1)
  1. TRILEPTAL [Suspect]
     Active Substance: OXCARBAZEPINE
     Indication: Seizure
     Dosage: 18 ML, QD
     Route: 065

REACTIONS (2)
  - Gastrointestinal disorder [Unknown]
  - Ulcer [Unknown]
